FAERS Safety Report 9159396 (Version 2)
Quarter: 2013Q1

REPORT INFORMATION
  Report Type: Spontaneous
  Country: US (occurrence: None)
  Receive Date: 20130213
  Receipt Date: 20130307
  Transmission Date: 20140127
  Serious: Yes (Hospitalization, Other)
  Sender: FDA-Public Use
  Company Number: 2013-035

PATIENT
  Age: 47 Year
  Sex: Male

DRUGS (6)
  1. PRIALT [Suspect]
     Route: 037
     Dates: end: 201211
  2. PRIALT [Suspect]
     Indication: SPINAL CORD INJURY
     Route: 037
     Dates: end: 201211
  3. DILAUDID [Suspect]
     Indication: PAIN
     Route: 042
  4. DILAUDID [Suspect]
     Indication: SPINAL CORD INJURY
     Route: 042
  5. CLONIDINE [Suspect]
     Indication: PAIN
     Route: 042
  6. CLONIDINE [Suspect]
     Indication: BLOOD PRESSURE FLUCTUATION
     Route: 042

REACTIONS (9)
  - Staphylococcal infection [None]
  - Oedema peripheral [None]
  - Suicidal ideation [None]
  - Weight increased [None]
  - Agitation [None]
  - Pain [None]
  - Abasia [None]
  - Post procedural complication [None]
  - Device alarm issue [None]
